FAERS Safety Report 4635537-3 (Version None)
Quarter: 2005Q2

REPORT INFORMATION
  Report Type: 
  Country: None (occurrence: None)
  Receive Date: 20050414
  Receipt Date: 20050104
  Transmission Date: 20051028
  Serious: Yes (Hospitalization)
  Sender: FDA-Public Use
  Company Number: US-MERCK-0501USA00364

PATIENT
  Age: 73 Year
  Sex: Female
  Weight: 66 kg

DRUGS (4)
  1. VIOXX [Suspect]
     Indication: RHEUMATOID ARTHRITIS
     Route: 048
     Dates: start: 19990101, end: 20040930
  2. METFORMIN [Concomitant]
     Indication: DIABETES MELLITUS
     Route: 065
  3. HUMULIN [Concomitant]
     Indication: DIABETES MELLITUS
     Route: 065
  4. LEVOXYL [Concomitant]
     Indication: THYROID DISORDER
     Route: 065

REACTIONS (8)
  - ANXIETY [None]
  - ASTHENIA [None]
  - BLOOD CHOLESTEROL INCREASED [None]
  - CEREBROVASCULAR ACCIDENT [None]
  - CHEST PAIN [None]
  - HYPERCHOLESTEROLAEMIA [None]
  - HYPERTENSION [None]
  - HYPOAESTHESIA [None]
